FAERS Safety Report 18054052 (Version 2)
Quarter: 2020Q3

REPORT INFORMATION
  Report Type: Spontaneous
  Country: US (occurrence: US)
  Receive Date: 20200722
  Receipt Date: 20200723
  Transmission Date: 20201103
  Serious: No
  Sender: FDA-Public Use
  Company Number: US-PFIZER INC-2020278954

PATIENT
  Sex: Male

DRUGS (1)
  1. VIAGRA [Suspect]
     Active Substance: SILDENAFIL CITRATE
     Dosage: UNK

REACTIONS (5)
  - Rash [Recovered/Resolved]
  - Abdominal discomfort [Recovered/Resolved]
  - Drug hypersensitivity [Recovered/Resolved]
  - Overweight [Unknown]
  - Dyspnoea [Recovered/Resolved]
